FAERS Safety Report 8170038-X (Version None)
Quarter: 2012Q1

REPORT INFORMATION
  Report Type: 
  Country: None (occurrence: None)
  Receive Date: 20120228
  Receipt Date: 20120222
  Transmission Date: 20120608
  Serious: Yes (Other)
  Sender: FDA-Public Use
  Company Number: US-SANOFI-AVENTIS-2012SA012142

PATIENT
  Age: 65 Year
  Sex: Female

DRUGS (2)
  1. MULTAQ [Suspect]
     Indication: ATRIAL FIBRILLATION
     Route: 048
     Dates: start: 20110701, end: 20120201
  2. ASPIRIN [Concomitant]

REACTIONS (5)
  - ANXIETY [None]
  - FEELING COLD [None]
  - WHEEZING [None]
  - LUNG DISORDER [None]
  - DYSPNOEA [None]
